FAERS Safety Report 23920353 (Version 1)
Quarter: 2024Q2

REPORT INFORMATION
  Report Type: Spontaneous
  Country: RO (occurrence: RO)
  Receive Date: 20240530
  Receipt Date: 20240530
  Transmission Date: 20240716
  Serious: Yes (Other)
  Sender: FDA-Public Use
  Company Number: RO-Merck Healthcare KGaA-2024027532

PATIENT
  Age: 47 Year
  Sex: Male

DRUGS (5)
  1. ERBITUX [Suspect]
     Active Substance: CETUXIMAB
     Indication: Tonsil cancer
     Dosage: 400 MG/M2, OTHER (LOADING)
     Route: 065
     Dates: start: 202307, end: 202310
  2. ERBITUX [Suspect]
     Active Substance: CETUXIMAB
     Dosage: 250 MG/M2, UNKNOWN
     Route: 065
  3. ERBITUX [Suspect]
     Active Substance: CETUXIMAB
     Dosage: 500 MG/M2, OTHER (EVERY TWO WEEKS)
     Route: 065
  4. DOCETAXEL [Concomitant]
     Active Substance: DOCETAXEL\DOCETAXEL ANHYDROUS
     Indication: Tonsil cancer
     Dosage: UNK
     Dates: start: 202307, end: 202310
  5. CISPLATIN [Concomitant]
     Active Substance: CISPLATIN
     Indication: Tonsil cancer
     Dosage: UNK
     Dates: start: 202307, end: 202310

REACTIONS (9)
  - Cachexia [Unknown]
  - General physical condition abnormal [Unknown]
  - Skin atrophy [Unknown]
  - Tongue coated [Unknown]
  - Dysphagia [Unknown]
  - Odynophagia [Unknown]
  - Lip dry [Unknown]
  - Angular cheilitis [Unknown]
  - Pallor [Unknown]

NARRATIVE: CASE EVENT DATE: 20231101
